FAERS Safety Report 9641297 (Version 1)
Quarter: 2013Q4

REPORT INFORMATION
  Report Type: Spontaneous
  Country: US (occurrence: None)
  Receive Date: 20131022
  Receipt Date: 20131022
  Transmission Date: 20140711
  Serious: Yes (Hospitalization)
  Sender: FDA-Public Use
  Company Number: None

PATIENT
  Age: 65 Year
  Sex: Female
  Weight: 69.85 kg

DRUGS (1)
  1. PACLITAXEL [Suspect]
     Route: 042
     Dates: start: 20130404, end: 20130613

REACTIONS (1)
  - Pneumonitis [None]
